FAERS Safety Report 8976955 (Version 3)
Quarter: 2013Q1

REPORT INFORMATION
  Report Type: Spontaneous
  Country: JP (occurrence: JP)
  Receive Date: 20121220
  Receipt Date: 20130110
  Transmission Date: 20140127
  Serious: Yes (Hospitalization)
  Sender: FDA-Public Use
  Company Number: JP-VERTEX PHARMACEUTICALS INC.-2012-026461

PATIENT
  Age: 63 Year
  Sex: Male

DRUGS (10)
  1. TELAVIC [Suspect]
     Indication: CHRONIC HEPATITIS C
     Dosage: 1500 MG, QD
     Route: 048
     Dates: start: 20121005, end: 20121207
  2. RIBAVIRIN [Suspect]
     Indication: CHRONIC HEPATITIS C
     Dosage: 600 MG, QD
     Route: 048
     Dates: start: 20121005, end: 20121108
  3. RIBAVIRIN [Suspect]
     Dosage: 400 MG, QD
     Route: 048
     Dates: start: 20121109, end: 20121207
  4. RIBAVIRIN [Suspect]
     Dosage: 400 MG, QD
     Route: 048
     Dates: start: 20121218
  5. PEGINTRON                          /01543001/ [Suspect]
     Indication: CHRONIC HEPATITIS C
     Dosage: 1.5 ?G/KG, QW
     Route: 058
     Dates: start: 20121005, end: 20121130
  6. PEGINTRON                          /01543001/ [Suspect]
     Dosage: 1.5 ?G/KG, QW
     Route: 058
     Dates: start: 20121215
  7. MUCOSTA [Concomitant]
     Dosage: 1 DF, PRN
     Route: 048
     Dates: start: 20121006
  8. WHITE PETROLATUM [Concomitant]
     Dosage: UNK, PRN
     Route: 051
     Dates: start: 20121207
  9. ATARAX-P                           /00058402/ [Concomitant]
     Dosage: 1 DF, QD
     Route: 048
     Dates: start: 20121207, end: 20121219
  10. RHYTHMY [Concomitant]
     Dosage: 1 DF, QD
     Route: 048
     Dates: start: 20121217

REACTIONS (6)
  - Erythema multiforme [Recovered/Resolved]
  - Abdominal discomfort [Unknown]
  - Pyrexia [Unknown]
  - Rash [Unknown]
  - Hyperuricaemia [Unknown]
  - Haemoglobin decreased [Unknown]
